FAERS Safety Report 9979952 (Version 1)
Quarter: 2014Q1

REPORT INFORMATION
  Report Type: Report from Study
  Country: US (occurrence: US)
  Receive Date: 20140307
  Receipt Date: 20140307
  Transmission Date: 20141002
  Serious: No
  Sender: FDA-Public Use
  Company Number: US-ABBVIE-13P-163-1174269-00

PATIENT
  Age: 32 Year
  Sex: Male

DRUGS (4)
  1. HUMIRA [Suspect]
     Indication: COLITIS ULCERATIVE
     Dates: start: 20130812
  2. CANASA [Concomitant]
     Indication: COLITIS ULCERATIVE
  3. CANASA [Concomitant]
     Indication: DIARRHOEA
  4. PROZAC [Concomitant]
     Indication: ANXIETY
     Dates: start: 201307, end: 201309

REACTIONS (1)
  - Inappropriate schedule of drug administration [Unknown]
